FAERS Safety Report 4648052-8 (Version None)
Quarter: 2005Q2

REPORT INFORMATION
  Report Type: 
  Country: None (occurrence: None)
  Receive Date: 20050428
  Receipt Date: 20050413
  Transmission Date: 20051028
  Serious: Yes (Hospitalization, Other)
  Sender: FDA-Public Use
  Company Number: US-MERCK-0504USA02065

PATIENT
  Age: 72 Year
  Sex: Male
  Weight: 123 kg

DRUGS (13)
  1. VIOXX [Suspect]
     Indication: ARTHRITIS
     Route: 048
  2. K-DUR 10 [Concomitant]
     Route: 065
  3. PLAVIX [Concomitant]
     Route: 065
  4. LASIX [Concomitant]
     Route: 065
  5. ACIPHEX [Concomitant]
     Route: 065
  6. TOPROL-XL [Concomitant]
     Route: 048
  7. ALLOPURINOL [Concomitant]
     Route: 065
  8. ISOSORBIDE MONONITRATE [Concomitant]
     Route: 065
  9. ZOCOR [Concomitant]
     Route: 048
  10. COZAAR [Concomitant]
     Route: 048
  11. NIFEDIPINE [Concomitant]
     Route: 065
  12. HYDRALAZINE [Concomitant]
     Route: 065
  13. PRILOSEC [Concomitant]
     Route: 065

REACTIONS (40)
  - AMNESIA [None]
  - ANAL FISSURE [None]
  - ANGINA UNSTABLE [None]
  - ANORECTAL DISORDER [None]
  - ANXIETY [None]
  - ARTERIOSCLEROSIS [None]
  - ATHEROSCLEROSIS [None]
  - BRADYCARDIA [None]
  - BRONCHITIS ACUTE [None]
  - CARDIAC DISORDER [None]
  - CARDIAC FAILURE CONGESTIVE [None]
  - CHEST PAIN [None]
  - CHOLELITHIASIS [None]
  - CHRONIC OBSTRUCTIVE PULMONARY DISEASE [None]
  - COLITIS ISCHAEMIC [None]
  - CONGENITAL ANAEMIA [None]
  - CORONARY ARTERY DISEASE [None]
  - CORONARY ARTERY EMBOLISM [None]
  - CORONARY ARTERY STENOSIS [None]
  - DIABETES MELLITUS [None]
  - DIVERTICULUM [None]
  - DIZZINESS [None]
  - DYSLIPIDAEMIA [None]
  - EMOTIONAL DISTRESS [None]
  - GASTROINTESTINAL HAEMORRHAGE [None]
  - HAEMORRHOIDS [None]
  - HYPERTENSION [None]
  - LARGE INTESTINAL ULCER [None]
  - LEFT VENTRICULAR END-DIASTOLIC PRESSURE INCREASED [None]
  - MYOCARDIAL INFARCTION [None]
  - PLATELET COUNT INCREASED [None]
  - PNEUMONIA [None]
  - PULMONARY HYPERTENSION [None]
  - RENAL CYST [None]
  - SLEEP APNOEA SYNDROME [None]
  - STAPHYLOCOCCAL BACTERAEMIA [None]
  - STAPHYLOCOCCAL INFECTION [None]
  - VASCULAR PSEUDOANEURYSM [None]
  - WHITE BLOOD CELL COUNT INCREASED [None]
  - WOUND INFECTION STAPHYLOCOCCAL [None]
